FAERS Safety Report 18861792 (Version 1)
Quarter: 2021Q1

REPORT INFORMATION
  Report Type: Spontaneous
  Country: US (occurrence: US)
  Receive Date: 20210208
  Receipt Date: 20210208
  Transmission Date: 20210420
  Serious: Yes (Other)
  Sender: FDA-Public Use
  Company Number: US-ENDO PHARMACEUTICALS INC-2021-000859

PATIENT

DRUGS (2)
  1. KETALAR [Suspect]
     Active Substance: KETAMINE HYDROCHLORIDE
     Indication: ELECTROCONVULSIVE THERAPY
     Dosage: UNK UNKNOWN, UNKNOWN
     Route: 065
  2. KETALAR [Suspect]
     Active Substance: KETAMINE HYDROCHLORIDE
     Indication: DEPRESSION

REACTIONS (3)
  - Off label use [Recovered/Resolved]
  - Suicidal ideation [Recovered/Resolved]
  - Psychological trauma [Recovered/Resolved]
